FAERS Safety Report 14628907 (Version 1)
Quarter: 2018Q1

REPORT INFORMATION
  Report Type: Spontaneous
  Country: US (occurrence: US)
  Receive Date: 20180312
  Receipt Date: 20180312
  Transmission Date: 20180509
  Serious: No
  Sender: FDA-Public Use
  Company Number: None

PATIENT
  Sex: Female

DRUGS (2)
  1. OTREXUP [Suspect]
     Active Substance: METHOTREXATE
     Indication: POST-TRAUMATIC OSTEOPOROSIS
     Route: 058
     Dates: start: 201802
  2. OTREXUP [Suspect]
     Active Substance: METHOTREXATE
     Indication: SJOGREN^S SYNDROME
     Route: 058
     Dates: start: 201802

REACTIONS (4)
  - Skin burning sensation [None]
  - Nausea [None]
  - Fatigue [None]
  - Bone pain [None]
